FAERS Safety Report 12007586 (Version 1)
Quarter: 2016Q1

REPORT INFORMATION
  Report Type: Report from Study
  Country: US (occurrence: US)
  Receive Date: 20160205
  Receipt Date: 20160205
  Transmission Date: 20160526
  Serious: No
  Sender: FDA-Public Use
  Company Number: US-ABBVIE-15K-163-1441559-00

PATIENT
  Sex: Female

DRUGS (1)
  1. HUMIRA [Suspect]
     Active Substance: ADALIMUMAB
     Indication: RHEUMATOID ARTHRITIS
     Route: 065
     Dates: start: 20140115

REACTIONS (6)
  - Large intestine polyp [Unknown]
  - Rheumatoid arthritis [Not Recovered/Not Resolved]
  - Respiratory tract infection [Recovered/Resolved]
  - Large intestinal polypectomy [Unknown]
  - Dyspepsia [Not Recovered/Not Resolved]
  - Epistaxis [Recovered/Resolved]
